FAERS Safety Report 10630825 (Version 1)
Quarter: 2014Q4

REPORT INFORMATION
  Report Type: Spontaneous
  Country: US (occurrence: US)
  Receive Date: 20141205
  Receipt Date: 20141205
  Transmission Date: 20150529
  Serious: No
  Sender: FDA-Public Use
  Company Number: US-BRISTOL-MYERS SQUIBB COMPANY-20669966

PATIENT
  Age: 77 Year
  Sex: Male

DRUGS (4)
  1. CRESTOR [Concomitant]
     Active Substance: ROSUVASTATIN CALCIUM
  2. YERVOY [Suspect]
     Active Substance: IPILIMUMAB
     Dosage: 4 DOSE
  3. METOPROLOL [Concomitant]
     Active Substance: METOPROLOL
  4. RAMIPRIL. [Concomitant]
     Active Substance: RAMIPRIL

REACTIONS (1)
  - Joint swelling [Unknown]
